FAERS Safety Report 15164547 (Version 2)
Quarter: 2018Q3

REPORT INFORMATION
  Report Type: Spontaneous
  Country: DE (occurrence: DE)
  Receive Date: 20180719
  Receipt Date: 20180820
  Transmission Date: 20181010
  Serious: Yes (Other)
  Sender: FDA-Public Use
  Company Number: DE-MERCK KGAA-2052383

PATIENT
  Age: 54 Year
  Sex: Female

DRUGS (6)
  1. NOVOTHYROX [Suspect]
     Active Substance: LEVOTHYROXINE SODIUM
     Dates: start: 2017
  2. NOVOTHYROX [Suspect]
     Active Substance: LEVOTHYROXINE SODIUM
  3. NOVOTHYROX [Suspect]
     Active Substance: LEVOTHYROXINE SODIUM
     Dates: start: 201806
  4. CORTISONE [Suspect]
     Active Substance: CORTISONE\HYDROCORTISONE
     Route: 030
     Dates: start: 20180704
  5. NOVOTHYROX [Suspect]
     Active Substance: LEVOTHYROXINE SODIUM
     Dates: start: 201806
  6. NOVOTHYROX [Suspect]
     Active Substance: LEVOTHYROXINE SODIUM
     Indication: POST PROCEDURAL HYPOTHYROIDISM

REACTIONS (12)
  - Sleep disorder [Recovered/Resolved]
  - Hyperhidrosis [Recovered/Resolved]
  - Muscle tightness [Recovered/Resolved]
  - Drug interaction [None]
  - Overdose [Recovered/Resolved]
  - Hyperthyroidism [None]
  - Back pain [None]
  - Restlessness [None]
  - Blood thyroid stimulating hormone increased [Recovered/Resolved]
  - Weight decreased [Recovered/Resolved]
  - Paradoxical drug reaction [None]
  - Insomnia [None]

NARRATIVE: CASE EVENT DATE: 201807
